FAERS Safety Report 8484492-7 (Version None)
Quarter: 2012Q3

REPORT INFORMATION
  Report Type: 
  Country: None (occurrence: None)
  Receive Date: 20120703
  Receipt Date: 20120702
  Transmission Date: 20120928
  Serious: Yes (Death)
  Sender: FDA-Public Use
  Company Number: PHHY2012NL056444

PATIENT
  Sex: Male

DRUGS (4)
  1. ZOMETA [Suspect]
     Indication: METASTASIS
     Dosage: 4 MG/100 ML 1X PER 28 DAYS
     Route: 042
  2. ZOMETA [Suspect]
     Dosage: 4 MG/100 ML 1X PER 28 DAYS
     Route: 042
     Dates: start: 20111220
  3. ZOMETA [Suspect]
     Dosage: 4 MG/100 ML 1X PER 28 DAYS
     Route: 042
     Dates: start: 20120214
  4. ZOMETA [Suspect]
     Dosage: 4 MG/100 ML 1X PER 28 DAYS
     Route: 042
     Dates: start: 20120507

REACTIONS (1)
  - DEATH [None]
